FAERS Safety Report 23254221 (Version 1)
Quarter: 2023Q4

REPORT INFORMATION
  Report Type: Spontaneous
  Country: CA (occurrence: CA)
  Receive Date: 20231202
  Receipt Date: 20231202
  Transmission Date: 20240109
  Serious: Yes (Hospitalization, Other)
  Sender: FDA-Public Use
  Company Number: None

PATIENT
  Age: 69 Year
  Sex: Female
  Weight: 67 kg

DRUGS (12)
  1. TOPOTECAN [Suspect]
     Active Substance: TOPOTECAN HYDROCHLORIDE
     Indication: Uterine cancer
     Dosage: SOLUTION INTRAVENOUS, CYCLICAL
     Route: 042
  2. BEVACIZUMAB [Concomitant]
     Active Substance: BEVACIZUMAB
     Route: 042
  3. BRINZOLAMIDE, BRIMONIDINE [Concomitant]
  4. CARBOPLATIN [Concomitant]
     Active Substance: CARBOPLATIN
     Dosage: SOLUTION INTRAVENOUS
  5. DOXORUBICIN [Concomitant]
     Active Substance: DOXORUBICIN
  6. HYDROXYCHLOROQUINE [Concomitant]
     Active Substance: HYDROXYCHLOROQUINE
  7. LEVOTHYROXINE SODIUM [Concomitant]
     Active Substance: LEVOTHYROXINE SODIUM
     Route: 065
  8. LOPERAMIDE [Concomitant]
     Active Substance: LOPERAMIDE
  9. METOCLOPRAMIDE [Concomitant]
     Active Substance: METOCLOPRAMIDE
  10. ONDANSETRON [Concomitant]
     Active Substance: ONDANSETRON
  11. PACLITAXEL [Concomitant]
     Active Substance: PACLITAXEL
     Dosage: LIQUID INTRAVENOUS
  12. PANTOPRAZOLE [Concomitant]
     Active Substance: PANTOPRAZOLE

REACTIONS (4)
  - Acute kidney injury [Recovering/Resolving]
  - Transfusion [Recovering/Resolving]
  - Pancytopenia [Recovering/Resolving]
  - Febrile neutropenia [Recovering/Resolving]
